FAERS Safety Report 20936215 (Version 1)
Quarter: 2022Q2

REPORT INFORMATION
  Report Type: Spontaneous
  Country: US (occurrence: None)
  Receive Date: 20220609
  Receipt Date: 20220609
  Transmission Date: 20220720
  Serious: No
  Sender: FDA-Public Use
  Company Number: US-ROCHE-2812228

PATIENT
  Sex: Male
  Weight: 99.880 kg

DRUGS (2)
  1. ACTEMRA [Suspect]
     Active Substance: TOCILIZUMAB
     Indication: Juvenile idiopathic arthritis
     Dosage: 162MG/0.9M
     Route: 058
     Dates: start: 20210324
  2. ACTEMRA [Suspect]
     Active Substance: TOCILIZUMAB

REACTIONS (7)
  - Device defective [Unknown]
  - Product complaint [Unknown]
  - Product administration error [Unknown]
  - Intercepted medication error [Unknown]
  - Ill-defined disorder [Unknown]
  - Weight increased [Unknown]
  - Unevaluable event [Unknown]
